FAERS Safety Report 10053467 (Version 3)
Quarter: 2014Q2

REPORT INFORMATION
  Report Type: Spontaneous
  Country: GB (occurrence: GB)
  Receive Date: 20140402
  Receipt Date: 20140408
  Transmission Date: 20141212
  Serious: Yes (Other)
  Sender: FDA-Public Use
  Company Number: PHFR2005GB04007

PATIENT
  Age: 45 Year
  Sex: Male

DRUGS (10)
  1. CLOZARIL [Suspect]
     Indication: OBSESSIVE-COMPULSIVE DISORDER
     Dosage: 300 MG, UNK
     Route: 048
     Dates: start: 20051114
  2. CLOZARIL [Suspect]
     Indication: OFF LABEL USE
     Dosage: 100 MG, UNK
     Route: 048
     Dates: start: 20051116
  3. CLOZARIL [Suspect]
     Dosage: 200 MG, UNK
     Route: 048
  4. CLOZARIL [Suspect]
     Dosage: UNK
     Route: 048
     Dates: start: 2007, end: 2009
  5. CLOZARIL [Suspect]
  6. METOPROLOL [Concomitant]
     Indication: CARDIAC DISORDER
     Dosage: 12.5 MG, UNK
     Route: 048
  7. RAMIPRIL [Concomitant]
     Indication: CARDIAC DISORDER
     Dosage: 2.5 MG, UNK
     Route: 048
  8. ASPIRINE [Concomitant]
     Indication: CARDIAC DISORDER
     Dosage: UNK
     Route: 048
  9. ATORVASTATIN [Concomitant]
     Indication: BLOOD CHOLESTEROL INCREASED
     Dosage: 10 MG/DAY
     Route: 048
  10. SERTRALINE [Concomitant]
     Indication: DEPRESSION
     Dosage: 150 MG/DAY
     Route: 048

REACTIONS (6)
  - Ventricular extrasystoles [Not Recovered/Not Resolved]
  - Extrasystoles [Not Recovered/Not Resolved]
  - Condition aggravated [Unknown]
  - Diabetes mellitus [Recovering/Resolving]
  - Blood glucose increased [Unknown]
  - Sinus tachycardia [Not Recovered/Not Resolved]
